FAERS Safety Report 19540897 (Version 1)
Quarter: 2021Q3

REPORT INFORMATION
  Report Type: Spontaneous
  Country: US (occurrence: US)
  Receive Date: 20210714
  Receipt Date: 20210714
  Transmission Date: 20211014
  Serious: No
  Sender: FDA-Public Use
  Company Number: None

PATIENT
  Age: 71 Year
  Sex: Female
  Weight: 90 kg

DRUGS (18)
  1. TRAZODONE [Concomitant]
     Active Substance: TRAZODONE HYDROCHLORIDE
  2. IRON [Concomitant]
     Active Substance: IRON
  3. OXYGEN. [Concomitant]
     Active Substance: OXYGEN
  4. LASIX [Concomitant]
     Active Substance: FUROSEMIDE
  5. VITAMIN E [Concomitant]
     Active Substance: .ALPHA.-TOCOPHEROL
  6. EQUATE ALLERGY RELIEF [Concomitant]
  7. XANAX [Concomitant]
     Active Substance: ALPRAZOLAM
  8. EQUATE OMEPRAZOLE [Concomitant]
     Active Substance: OMEPRAZOLE
  9. LISINOPRIL. [Concomitant]
     Active Substance: LISINOPRIL
  10. OMEGA?3 FISH OIL [Concomitant]
     Active Substance: FISH OIL\OMEGA-3 FATTY ACIDS
  11. VITAMIN B12 [Concomitant]
     Active Substance: CYANOCOBALAMIN
  12. EVISTA [Concomitant]
     Active Substance: RALOXIFENE HYDROCHLORIDE
  13. VITAMIN C [Concomitant]
     Active Substance: ASCORBIC ACID
  14. VITAMIN D3 [Concomitant]
     Active Substance: CHOLECALCIFEROL
  15. DOXEPIN [Suspect]
     Active Substance: DOXEPIN
     Indication: INSOMNIA
     Dosage: ?          QUANTITY:1 CAPSULE(S);?
     Route: 048
     Dates: start: 20210515, end: 20210518
  16. SIMVASTATIN. [Concomitant]
     Active Substance: SIMVASTATIN
  17. ASPIRIN. [Concomitant]
     Active Substance: ASPIRIN
  18. AMITRIPTYLINE [Concomitant]
     Active Substance: AMITRIPTYLINE

REACTIONS (5)
  - Rash [None]
  - Drug ineffective [None]
  - Swollen tongue [None]
  - Swelling face [None]
  - Hypoaesthesia oral [None]

NARRATIVE: CASE EVENT DATE: 20210515
